FAERS Safety Report 6612744-1 (Version None)
Quarter: 2010Q1

REPORT INFORMATION
  Report Type: 
  Country: None (occurrence: None)
  Receive Date: 20100303
  Receipt Date: 20100222
  Transmission Date: 20100710
  Serious: Yes (Other)
  Sender: FDA-Public Use
  Company Number: UA-ABBOTT-10P-269-0627819-00

PATIENT
  Age: 48 Year
  Sex: Female

DRUGS (1)
  1. LUPRON DEPOT [Suspect]
     Indication: ENDOMETRIAL HYPERPLASIA
     Route: 030
     Dates: start: 20100218

REACTIONS (1)
  - BLOOD PRESSURE INCREASED [None]
